FAERS Safety Report 7310933-4 (Version None)
Quarter: 2011Q1

REPORT INFORMATION
  Report Type: 
  Country: None (occurrence: None)
  Receive Date: 20110224
  Receipt Date: 20110210
  Transmission Date: 20110831
  Serious: Yes (Other)
  Sender: FDA-Public Use
  Company Number: PHHY2011FR11170

PATIENT
  Age: 47 Year
  Sex: Male

DRUGS (2)
  1. LEPONEX [Suspect]
     Dosage: 100 MG, FIVE TIMES A DAY
     Route: 048
     Dates: end: 20081201
  2. CHLORAMINOPHENE [Concomitant]
     Dosage: UNK
     Dates: start: 20090101

REACTIONS (2)
  - NEUTROPHIL COUNT DECREASED [None]
  - LYMPHOCYTIC LEUKAEMIA [None]
